FAERS Safety Report 8830229 (Version 2)
Quarter: 2012Q4

REPORT INFORMATION
  Report Type: 
  Country: US (occurrence: US)
  Receive Date: 20121008
  Receipt Date: 20121017
  Transmission Date: 20130627
  Serious: No
  Sender: FDA-Public Use
  Company Number: US-VERTEX PHARMACEUTICAL INC.-2012-021537

PATIENT
  Age: 62 Year
  Sex: Female
  Weight: 71 kg

DRUGS (9)
  1. VX-950 [Suspect]
     Indication: HEPATITIS C
     Dosage: 750 mg, tid
     Route: 048
  2. PEGASYS [Suspect]
     Indication: HEPATITIS C
     Dosage: 180 ?g, UNK
  3. RIBAPAK [Suspect]
     Indication: HEPATITIS C
     Dosage: 1200 mg, qd
  4. VITAMIN D /00107901/ [Concomitant]
     Dosage: 1000 ut, UNK
  5. ASPIRIN [Concomitant]
     Dosage: 81 mg, UNK
  6. CALCIUM [Concomitant]
     Dosage: 500 mg, UNK
  7. GINKO BILOBA [Concomitant]
     Dosage: 100 mg, UNK
  8. MULTIVITAMIN                       /00097801/ [Concomitant]
  9. TYLENOL /00020001/ [Concomitant]
     Dosage: 500 mg, UNK

REACTIONS (6)
  - Visual impairment [Unknown]
  - Chills [Unknown]
  - Dry skin [Unknown]
  - Crying [Unknown]
  - Fatigue [Unknown]
  - Nausea [Unknown]
